FAERS Safety Report 23142819 (Version 1)
Quarter: 2023Q4

REPORT INFORMATION
  Report Type: Spontaneous
  Country: US (occurrence: None)
  Receive Date: 20231102
  Receipt Date: 20231102
  Transmission Date: 20240110
  Serious: Yes (unspecified)
  Sender: FDA-Public Use
  Company Number: None

PATIENT
  Age: 41 Year
  Sex: Female
  Weight: 102.1 kg

DRUGS (1)
  1. SODIUM FERRIC GLUCONATE COMPLEX [Suspect]
     Active Substance: SODIUM FERRIC GLUCONATE COMPLEX
     Indication: Iron deficiency anaemia
     Dosage: FREQUENCY : ONCE;?
     Route: 042
     Dates: start: 20231022, end: 20231022

REACTIONS (6)
  - Infusion related reaction [None]
  - Joint swelling [None]
  - Dyspnoea [None]
  - Burning sensation [None]
  - Pharyngeal swelling [None]
  - Tachycardia [None]

NARRATIVE: CASE EVENT DATE: 20231022
